FAERS Safety Report 8439703 (Version 2)
Quarter: 2012Q4

REPORT INFORMATION
  Report Type: Spontaneous
  Country: US (occurrence: None)
  Receive Date: 20120104
  Receipt Date: 20120508
  Transmission Date: 20130627
  Serious: No
  Sender: FDA-Public Use
  Company Number: 2011HGS-002701

PATIENT
  Age: 38 Year
  Sex: Female
  Weight: 100 kg

DRUGS (9)
  1. BENLYSTA [Suspect]
     Indication: SYSTEMIC LUPUS ERYTHEMATOSUS
     Dosage: 10 MG/KG, 1 IN 16 D, INTRAVENOUS DRIP
     Route: 041
     Dates: start: 20111005
  2. BENLYSTA [Suspect]
     Dosage: 10 MG/KG, 1 IN 16 D, INTRAVENOUS DRIP
     Route: 041
     Dates: start: 20111005
  3. BENLYSTA [Suspect]
     Indication: SYSTEMIC LUPUS ERYTHEMATOSUS
     Route: 042
     Dates: start: 20110915, end: 20110915
  4. BENLYSTA [Suspect]
     Route: 042
     Dates: start: 20110915, end: 20110915
  5. PLAQUENIL (HYDROXYCHLOROQUINE PHOSPHATE) [Concomitant]
  6. IMURAN (AZATHIOPRINE) [Concomitant]
  7. GABAPENTIN (GABAPENTIN) [Concomitant]
  8. NEXIUM (ESOMEPRAZOLE MAGNESIUM) [Concomitant]
  9. ADVAIR (SERETIDE) (FLUTICASONE PROPIONATE, SALMETEROL) [Concomitant]

REACTIONS (6)
  - Dyspnoea [None]
  - Pyrexia [None]
  - Diarrhoea [None]
  - Nausea [None]
  - Headache [None]
  - Abdominal pain [None]
